FAERS Safety Report 15960728 (Version 21)
Quarter: 2022Q1

REPORT INFORMATION
  Report Type: Report from Study
  Country: CN (occurrence: None)
  Receive Date: 20190214
  Receipt Date: 20220312
  Transmission Date: 20220423
  Serious: Yes (Hospitalization)
  Sender: FDA-Public Use
  Company Number: CN-ROCHE-2263343

PATIENT
  Age: 37 Year
  Sex: Male
  Weight: 82 kg

DRUGS (18)
  1. ATEZOLIZUMAB [Suspect]
     Active Substance: ATEZOLIZUMAB
     Indication: Hepatocellular carcinoma
     Dosage: ON 17/FEB/2019, HE RECEIVED THE LAST DOSE  OF ATEZOLIZUMAB 1200 MG FOR PROTEINURIA.?ON 21/NOV/2018,
     Route: 042
     Dates: start: 20181029
  2. BEVACIZUMAB [Suspect]
     Active Substance: BEVACIZUMAB
     Indication: Hepatocellular carcinoma
     Dosage: ON 21/NOV/2018, HE RECEIVED THE LAST DOSE OF BEVACIZUMAB 1320 MG FOR PROTEINURIA.?DATE OF MOST RECEN
     Route: 042
     Dates: start: 20181029
  3. FILGRASTIM [Concomitant]
     Active Substance: FILGRASTIM
     Indication: White blood cell count increased
     Dates: start: 20190117
  4. FILGRASTIM [Concomitant]
     Active Substance: FILGRASTIM
     Dates: start: 20190214, end: 20190216
  5. AMLODIPINE [Concomitant]
     Active Substance: AMLODIPINE BESYLATE
     Dates: start: 20190213
  6. CEPHRADINE [Concomitant]
     Active Substance: CEPHRADINE
     Indication: Infection
     Dates: start: 20190107, end: 20190108
  7. ENTECAVIR [Concomitant]
     Active Substance: ENTECAVIR
     Indication: Chronic hepatitis B
     Dates: start: 20171120
  8. DEXTROSE [Concomitant]
     Active Substance: DEXTROSE
     Dates: start: 20181211, end: 20181218
  9. SODIUM CHLORIDE [Concomitant]
     Active Substance: SODIUM CHLORIDE
     Dates: start: 20181211, end: 20181218
  10. POTASSIUM ASPARTATE [Concomitant]
     Active Substance: POTASSIUM ASPARTATE
     Dates: start: 20181211, end: 20181218
  11. METRONIDAZOLE [Concomitant]
     Active Substance: METRONIDAZOLE
     Indication: Infection
     Dates: start: 20181212, end: 20190116
  12. METRONIDAZOLE [Concomitant]
     Active Substance: METRONIDAZOLE
     Dates: start: 20190105, end: 20190111
  13. CLINDAMYCIN HYDROCHLORIDE [Concomitant]
     Active Substance: CLINDAMYCIN HYDROCHLORIDE
     Indication: Infection
     Dates: start: 20181224, end: 20181228
  14. AMOXICILLIN\CLAVULANIC ACID [Concomitant]
     Active Substance: AMOXICILLIN\CLAVULANIC ACID
     Indication: Infection
     Dates: start: 20190105, end: 20190106
  15. AMOXICILLIN\CLAVULANIC ACID [Concomitant]
     Active Substance: AMOXICILLIN\CLAVULANIC ACID
     Dates: start: 20181210, end: 20181217
  16. GLUTATHIONE [Concomitant]
     Active Substance: GLUTATHIONE
     Indication: Hepatitis
     Dosage: BUCCAL TABLET
     Dates: start: 20190117
  17. GLUTATHIONE [Concomitant]
     Active Substance: GLUTATHIONE
     Dates: start: 20190209, end: 20190214
  18. HERBALS\DIAMMONIUM GLYCYRRHIZINATE [Concomitant]
     Active Substance: HERBALS\DIAMMONIUM GLYCYRRHIZINATE
     Indication: Hepatitis
     Dates: start: 20190209

REACTIONS (2)
  - Hypoproteinaemia [Recovered/Resolved]
  - Proteinuria [Not Recovered/Not Resolved]

NARRATIVE: CASE EVENT DATE: 20181211
